FAERS Safety Report 18230149 (Version 1)
Quarter: 2020Q3

REPORT INFORMATION
  Report Type: Spontaneous
  Country: US (occurrence: US)
  Receive Date: 20200903
  Receipt Date: 20200903
  Transmission Date: 20201103
  Serious: Yes (Death, Hospitalization, Other)
  Sender: FDA-Public Use
  Company Number: US-PURDUE-USA-2020-0164549

PATIENT
  Sex: Female

DRUGS (5)
  1. HYDROCODONE BITARTRATE AND ACETAMINOPHEN [Suspect]
     Active Substance: ACETAMINOPHEN\HYDROCODONE BITARTRATE
     Indication: PRODUCT USED FOR UNKNOWN INDICATION
     Dosage: UNK
     Route: 048
  2. OXYCODONE HYDROCHLORIDE (SIMILAR TO NDA 22?272) [Suspect]
     Active Substance: OXYCODONE HYDROCHLORIDE
     Indication: PAIN
     Dosage: UNK
     Route: 048
  3. OXYCODONE/ ACETAMINOPHEN TABLETS [Suspect]
     Active Substance: ACETAMINOPHEN\OXYCODONE HYDROCHLORIDE
     Indication: PRODUCT USED FOR UNKNOWN INDICATION
     Dosage: UNK
     Route: 048
  4. OXYCONTIN [Suspect]
     Active Substance: OXYCODONE HYDROCHLORIDE
     Indication: PAIN
     Dosage: UNK
     Route: 048
  5. PERCOCET                           /00446701/ [Suspect]
     Active Substance: ACETAMINOPHEN\OXYCODONE HYDROCHLORIDE\OXYCODONE TEREPHTHALATE
     Indication: PAIN
     Dosage: UNK
     Route: 065
     Dates: start: 1980

REACTIONS (40)
  - Renal failure [Fatal]
  - Pain [Unknown]
  - Diarrhoea [Unknown]
  - Sepsis [Fatal]
  - Road traffic accident [Unknown]
  - Abdominal pain upper [Unknown]
  - Distractibility [Unknown]
  - Renal disorder [Unknown]
  - Acute respiratory failure [Fatal]
  - Colitis [Fatal]
  - Suicide threat [Unknown]
  - Hallucination [Unknown]
  - Dysarthria [Unknown]
  - Gait disturbance [Unknown]
  - Dependence [Unknown]
  - Decreased appetite [Unknown]
  - Asthenia [Unknown]
  - Confusional state [Unknown]
  - Myalgia [Unknown]
  - Constipation [Unknown]
  - Spinal operation [Unknown]
  - Body temperature abnormal [Unknown]
  - Disorientation [Unknown]
  - Balance disorder [Unknown]
  - Fall [Unknown]
  - Overdose [Unknown]
  - Chills [Unknown]
  - Muscle spasms [Unknown]
  - Irritability [Unknown]
  - Hyperhidrosis [Unknown]
  - Fatigue [Unknown]
  - Vomiting [Unknown]
  - Nausea [Unknown]
  - Aggression [Unknown]
  - Loss of libido [Unknown]
  - Bladder disorder [Unknown]
  - Illness [Unknown]
  - Hypertension [Unknown]
  - Insomnia [Unknown]
  - Poor quality sleep [Unknown]

NARRATIVE: CASE EVENT DATE: 2008
